FAERS Safety Report 4839421-1 (Version None)
Quarter: 2005Q4

REPORT INFORMATION
  Report Type: 
  Country: None (occurrence: None)
  Receive Date: 20051129
  Receipt Date: 20050328
  Transmission Date: 20060501
  Serious: No
  Sender: FDA-Public Use
  Company Number: US-GLAXOSMITHKLINE-A0551495A

PATIENT
  Sex: Male

DRUGS (4)
  1. WELLBUTRIN SR [Suspect]
     Indication: DEPRESSION
     Dosage: 100MG TWICE PER DAY
     Route: 048
  2. TRAZODONE [Concomitant]
  3. GINSENG [Concomitant]
  4. BEER [Concomitant]

REACTIONS (3)
  - AGITATION [None]
  - DYSURIA [None]
  - PARAESTHESIA [None]
